FAERS Safety Report 6196186-1 (Version None)
Quarter: 2009Q2

REPORT INFORMATION
  Report Type: 
  Country: None (occurrence: None)
  Receive Date: 20090520
  Receipt Date: 20090512
  Transmission Date: 20091009
  Serious: Yes (Hospitalization)
  Sender: FDA-Public Use
  Company Number: US-BIOGENIDEC-2009BI014503

PATIENT
  Age: 39 Year
  Sex: Female
  Weight: 113 kg

DRUGS (1)
  1. TYSABRI [Suspect]
     Indication: MULTIPLE SCLEROSIS
     Route: 042
     Dates: start: 20080401, end: 20081001

REACTIONS (7)
  - DIZZINESS [None]
  - FALL [None]
  - FOOT FRACTURE [None]
  - GASTRIC BYPASS [None]
  - GASTRIC OPERATION [None]
  - MULTIPLE SCLEROSIS RELAPSE [None]
  - URINARY TRACT INFECTION [None]
